FAERS Safety Report 7101269-5 (Version None)
Quarter: 2010Q4

REPORT INFORMATION
  Report Type: 
  Country: None (occurrence: None)
  Receive Date: 20101115
  Receipt Date: 20100106
  Transmission Date: 20110411
  Serious: No
  Sender: FDA-Public Use
  Company Number: US-PFIZER INC-2010004632

PATIENT
  Sex: Female
  Weight: 86.2 kg

DRUGS (4)
  1. CLINDAMYCIN PHOSPHATE [Suspect]
     Indication: CELLULITIS
     Dosage: UNK
     Route: 042
     Dates: start: 20091231, end: 20091231
  2. CLINDAMYCIN PHOSPHATE [Suspect]
     Dosage: 600 MG, TWO DOSES
     Dates: start: 20100101, end: 20100101
  3. CLINDAMYCIN PHOSPHATE [Suspect]
     Dosage: 600 MG, SINGLE DOSE
     Dates: start: 20100102, end: 20100102
  4. VANCOMYCIN [Suspect]
     Dosage: UNK
     Route: 042
     Dates: start: 20091231, end: 20091231

REACTIONS (1)
  - RASH [None]
